FAERS Safety Report 9641825 (Version 1)
Quarter: 2013Q4

REPORT INFORMATION
  Report Type: Report from Study
  Country: US (occurrence: US)
  Receive Date: 20131023
  Receipt Date: 20131023
  Transmission Date: 20140711
  Serious: Yes (Hospitalization, Other)
  Sender: FDA-Public Use
  Company Number: US-US-EMD SERONO, INC.-7244081

PATIENT
  Age: 62 Year
  Sex: Male
  Weight: 88 kg

DRUGS (5)
  1. REBIF [Suspect]
     Indication: PRODUCT USED FOR UNKNOWN INDICATION
     Route: 058
     Dates: start: 20130614, end: 201310
  2. METHADONE [Concomitant]
     Indication: RENAL PAIN
  3. METHADONE [Concomitant]
     Indication: BACK PAIN
  4. LISINOPRIL [Concomitant]
     Indication: HYPERTENSION
  5. SPIRONOLACTONE [Concomitant]
     Indication: HYPERTENSION

REACTIONS (14)
  - Cardiac failure congestive [Not Recovered/Not Resolved]
  - Right ventricular failure [Not Recovered/Not Resolved]
  - Renal failure [Not Recovered/Not Resolved]
  - Atrial fibrillation [Unknown]
  - Atrial flutter [Unknown]
  - Kidney infection [Not Recovered/Not Resolved]
  - Urinary tract infection staphylococcal [Not Recovered/Not Resolved]
  - Streptococcal urinary tract infection [Not Recovered/Not Resolved]
  - Injury associated with device [Unknown]
  - Hypertension [Unknown]
  - Dysstasia [Unknown]
  - Fall [Unknown]
  - Mass [Not Recovered/Not Resolved]
  - Head injury [Unknown]
